FAERS Safety Report 6868272-1 (Version None)
Quarter: 2010Q3

REPORT INFORMATION
  Report Type: 
  Country: None (occurrence: None)
  Receive Date: 20100722
  Receipt Date: 20080527
  Transmission Date: 20110219
  Serious: No
  Sender: FDA-Public Use
  Company Number: US-PFIZER INC-2008045346

PATIENT
  Sex: Female
  Weight: 83.91 kg

DRUGS (9)
  1. CHANTIX [Suspect]
     Indication: SMOKING CESSATION THERAPY
     Route: 048
     Dates: start: 20080521
  2. METHYLPHENIDATE [Concomitant]
  3. CONCERTA [Concomitant]
  4. IMIPRAMINE [Concomitant]
  5. PREMARIN [Concomitant]
  6. PROMETRIUM [Concomitant]
  7. LISINOPRIL [Concomitant]
  8. GEODON [Concomitant]
  9. ALL OTHER THERAPEUTIC PRODUCTS [Concomitant]

REACTIONS (1)
  - MEDICATION ERROR [None]
